FAERS Safety Report 9544082 (Version 3)
Quarter: 2014Q1

REPORT INFORMATION
  Report Type: Spontaneous
  Country: US (occurrence: US)
  Receive Date: 20130923
  Receipt Date: 20140321
  Transmission Date: 20141002
  Serious: Yes (Hospitalization)
  Sender: FDA-Public Use
  Company Number: US-ASTRAZENECA-2013SE64741

PATIENT
  Age: 58 Year
  Sex: Male
  Weight: 170.1 kg

DRUGS (14)
  1. NEXIUM [Suspect]
     Indication: GASTROOESOPHAGEAL REFLUX DISEASE
     Route: 048
     Dates: start: 2003
  2. LISINOPRIL [Suspect]
     Route: 048
     Dates: start: 1993
  3. ONGLYZA [Suspect]
     Indication: DIABETES MELLITUS
     Route: 048
     Dates: start: 2012
  4. SEROQUEL [Suspect]
     Indication: BIPOLAR DISORDER
     Route: 048
     Dates: start: 2009
  5. SEROQUEL [Suspect]
     Indication: BIPOLAR DISORDER
     Route: 048
     Dates: end: 20130803
  6. ACTOS [Concomitant]
     Indication: DIABETES MELLITUS
     Dates: start: 1988
  7. SIMVASTATIN [Concomitant]
     Dates: start: 1988
  8. METOPROLOL TARTRATE [Concomitant]
     Indication: CARDIAC DISORDER
     Dates: start: 2011
  9. METFORMIN [Concomitant]
     Indication: DIABETES MELLITUS
     Dates: start: 1993
  10. LEXAPRO [Concomitant]
     Indication: DEPRESSION
     Dates: start: 1983
  11. GLIPIZIDE [Concomitant]
     Indication: DIABETES MELLITUS
  12. XANAX [Concomitant]
     Indication: ANXIETY
     Dates: start: 1983
  13. LANTUS [Concomitant]
     Dates: start: 2010
  14. LANTUS [Concomitant]
     Dosage: 1DF: 30UNITS
     Dates: start: 2010

REACTIONS (4)
  - Arthropathy [Unknown]
  - Anxiety [Unknown]
  - Panic attack [Unknown]
  - Mood swings [Unknown]
